FAERS Safety Report 8273704-0 (Version None)
Quarter: 2012Q2

REPORT INFORMATION
  Report Type: 
  Country: None (occurrence: None)
  Receive Date: 20120411
  Receipt Date: 20120328
  Transmission Date: 20120825
  Serious: Yes (Hospitalization, Disabling, Other)
  Sender: FDA-Public Use
  Company Number: BD-ASTELLAS-2012US003484

PATIENT
  Age: 24 Year
  Sex: Female
  Weight: 40 kg

DRUGS (3)
  1. FERROUS SULFATE W/FOLIC ACID [Concomitant]
     Indication: PRODUCT USED FOR UNKNOWN INDICATION
     Dosage: UNK
     Route: 065
     Dates: start: 20110803, end: 20110908
  2. AMBISOME [Suspect]
     Indication: VISCERAL LEISHMANIASIS
     Dosage: 3 MG/KG, UNKNOWN/D
     Route: 065
     Dates: start: 20110803
  3. ACETAMINOPHEN [Concomitant]
     Indication: PRODUCT USED FOR UNKNOWN INDICATION
     Dosage: UNK
     Route: 065
     Dates: start: 20110803, end: 20110826

REACTIONS (3)
  - MYALGIA [None]
  - PREMATURE DELIVERY [None]
  - ASTHENIA [None]
